FAERS Safety Report 5493662-1 (Version None)
Quarter: 2007Q4

REPORT INFORMATION
  Report Type: 
  Country: None (occurrence: None)
  Receive Date: 20071023
  Receipt Date: 20071012
  Transmission Date: 20080405
  Serious: Yes (Hospitalization, Other)
  Sender: FDA-Public Use
  Company Number: NO-ELI_LILLY_AND_COMPANY-NO200708005885

PATIENT
  Age: 72 Year
  Sex: Male

DRUGS (1)
  1. CYMBALTA [Suspect]
     Indication: DEPRESSION
     Dosage: UNK, UNKNOWN
     Route: 048
     Dates: start: 20070601

REACTIONS (2)
  - CHRONIC LYMPHOCYTIC LEUKAEMIA RECURRENT [None]
  - HAEMOLYTIC ANAEMIA [None]
